FAERS Safety Report 22271625 (Version 3)
Quarter: 2023Q2

REPORT INFORMATION
  Report Type: Report from Study
  Country: US (occurrence: US)
  Receive Date: 20230502
  Receipt Date: 20230630
  Transmission Date: 20230721
  Serious: Yes (Other)
  Sender: FDA-Public Use
  Company Number: US-ABBVIE-4310587

PATIENT
  Age: 68 Year
  Sex: Female

DRUGS (1)
  1. HUMIRA [Suspect]
     Active Substance: ADALIMUMAB
     Indication: Rheumatoid arthritis
     Route: 058
     Dates: start: 20151022, end: 202208

REACTIONS (10)
  - Arthritis [Recovering/Resolving]
  - Dyskinesia [Unknown]
  - Intentional product misuse [Unknown]
  - Neuropathy peripheral [Unknown]
  - Alopecia [Unknown]
  - Blindness [Unknown]
  - Injection site pain [Unknown]
  - Ligament rupture [Recovering/Resolving]
  - Cartilage injury [Recovering/Resolving]
  - Synovial rupture [Recovering/Resolving]

NARRATIVE: CASE EVENT DATE: 20221101
